FAERS Safety Report 21752516 (Version 3)
Quarter: 2023Q1

REPORT INFORMATION
  Report Type: Spontaneous
  Country: US (occurrence: US)
  Receive Date: 20221220
  Receipt Date: 20230208
  Transmission Date: 20230417
  Serious: Yes (Hospitalization, Other)
  Sender: FDA-Public Use
  Company Number: US-TAKEDA-2022TUS097102

PATIENT
  Age: 48 Year
  Sex: Female
  Weight: 47 kg

DRUGS (36)
  1. MOTEGRITY [Suspect]
     Active Substance: PRUCALOPRIDE SUCCINATE
     Indication: Constipation
     Dosage: UNK
     Route: 065
     Dates: start: 202205
  2. MOTEGRITY [Suspect]
     Active Substance: PRUCALOPRIDE SUCCINATE
     Dosage: 2 MILLIGRAM, QD
     Route: 048
     Dates: start: 20220818
  3. ALBUTEROL [Concomitant]
     Active Substance: ALBUTEROL
  4. CLARITIN [Concomitant]
     Active Substance: LORATADINE
  5. GABAPENTIN [Concomitant]
     Active Substance: GABAPENTIN
     Dosage: 100 MILLIGRAM
     Route: 048
  6. EFFEXOR [Concomitant]
     Active Substance: VENLAFAXINE HYDROCHLORIDE
     Dosage: 37.5 MILLIGRAM, QD
     Route: 048
  7. RESTASIS [Concomitant]
     Active Substance: CYCLOSPORINE
  8. PANTOPRAZOLE [Concomitant]
     Active Substance: PANTOPRAZOLE
     Dosage: 20 MILLIGRAM, QD
     Route: 048
  9. PANTOPRAZOLE [Concomitant]
     Active Substance: PANTOPRAZOLE
     Dosage: 40 MILLIGRAM, QD
     Route: 048
  10. PEPCID [Concomitant]
     Active Substance: FAMOTIDINE
     Dosage: 40 MILLIGRAM
     Route: 065
  11. REGLAN [Concomitant]
     Active Substance: METOCLOPRAMIDE HYDROCHLORIDE
     Dosage: 1 DOSAGE FORM, Q6HR
     Route: 065
  12. METOCLOPRAMIDE [Concomitant]
     Active Substance: METOCLOPRAMIDE
     Dosage: 1 DOSAGE FORM, QID
     Route: 065
  13. LINZESS [Concomitant]
     Active Substance: LINACLOTIDE
     Dosage: 1 DOSAGE FORM, QD
     Route: 065
  14. LIPITOR [Concomitant]
     Active Substance: ATORVASTATIN CALCIUM
     Dosage: 80 MILLIGRAM
     Route: 048
  15. NITROSTAT [Concomitant]
     Active Substance: NITROGLYCERIN
     Dosage: UNK
     Route: 065
  16. ZITHROMAX [Concomitant]
     Active Substance: AZITHROMYCIN DIHYDRATE
     Dosage: UNK
     Route: 065
  17. ASPIRIN [Concomitant]
     Active Substance: ASPIRIN
     Dosage: UNK
     Route: 065
  18. TICAGRELOR [Concomitant]
     Active Substance: TICAGRELOR
     Dosage: UNK
     Route: 065
  19. TRAZODONE [Concomitant]
     Active Substance: TRAZODONE HYDROCHLORIDE
     Dosage: 100 MILLIGRAM, QD
     Route: 065
  20. PROTONIX [Concomitant]
     Active Substance: PANTOPRAZOLE SODIUM
     Dosage: UNK
     Route: 065
  21. NEURONTIN [Concomitant]
     Active Substance: GABAPENTIN
     Dosage: UNK
     Route: 065
  22. BOTOX [Concomitant]
     Active Substance: ONABOTULINUMTOXINA
     Dosage: 200 UNK
     Route: 065
  23. VALTREX [Concomitant]
     Active Substance: VALACYCLOVIR HYDROCHLORIDE
     Dosage: 500 MILLIGRAM
     Route: 065
  24. CLONAZEPAM [Concomitant]
     Active Substance: CLONAZEPAM
     Dosage: 0.5 MILLIGRAM
     Route: 065
  25. ATORVASTATIN [Concomitant]
     Active Substance: ATORVASTATIN
     Dosage: UNK
     Route: 065
  26. VENLAFAXINE [Concomitant]
     Active Substance: VENLAFAXINE HYDROCHLORIDE
     Dosage: UNK
     Route: 065
  27. VALACYCLOVIR [Concomitant]
     Active Substance: VALACYCLOVIR HYDROCHLORIDE
     Dosage: 500 MILLIGRAM, QD
     Route: 065
  28. TOPIRAMATE [Concomitant]
     Active Substance: TOPIRAMATE
     Dosage: 25 MILLIGRAM, BID
     Route: 065
  29. UBROGEPANT [Concomitant]
     Active Substance: UBROGEPANT
     Dosage: 100 MILLIGRAM
     Route: 048
  30. LOPRESSOR [Concomitant]
     Active Substance: METOPROLOL TARTRATE
     Dosage: 0.5 DOSAGE FORM, BID
     Route: 048
  31. METOPROLOL TARTRATE [Concomitant]
     Active Substance: METOPROLOL TARTRATE
     Dosage: 25 MILLIGRAM
     Route: 048
  32. LISINOPRIL [Concomitant]
     Active Substance: LISINOPRIL
     Dosage: 1 DOSAGE FORM, QD
     Route: 048
  33. NITROGLYCERIN [Concomitant]
     Active Substance: NITROGLYCERIN
     Dosage: 0.4 MILLIGRAM
     Route: 065
  34. AZITHROMYCIN [Concomitant]
     Active Substance: AZITHROMYCIN
     Dosage: 500 MILLIGRAM
     Route: 048
  35. LINACLOTIDE [Concomitant]
     Active Substance: LINACLOTIDE
     Dosage: 290 MICROGRAM
     Route: 048
  36. CYCLOSPORINE [Concomitant]
     Active Substance: CYCLOSPORINE

REACTIONS (57)
  - Acute myocardial infarction [Recovering/Resolving]
  - Back pain [Recovering/Resolving]
  - Coronary artery disease [Unknown]
  - Arteriospasm coronary [Unknown]
  - Ventricular hypokinesia [Unknown]
  - Coronary ostial stenosis [Unknown]
  - Angina unstable [Unknown]
  - Coronary artery stenosis [Unknown]
  - Chest injury [Unknown]
  - Cerebral palsy [Unknown]
  - Cardiac flutter [Unknown]
  - Dyspepsia [Unknown]
  - Influenza like illness [Unknown]
  - Nasal congestion [Unknown]
  - Nasopharyngitis [Unknown]
  - Gastrooesophageal reflux disease [Unknown]
  - Cardiac discomfort [Unknown]
  - Gastritis [Unknown]
  - Blood pressure decreased [Unknown]
  - Thyroid mass [Unknown]
  - Herpes simplex [Unknown]
  - Facet joint syndrome [Unknown]
  - Stenosis [Unknown]
  - Hyperplasia [Unknown]
  - Arthralgia [Unknown]
  - Eructation [Unknown]
  - Adjustment disorder with disturbance of conduct [Unknown]
  - Post procedural complication [Unknown]
  - Myalgia [Unknown]
  - Neck pain [Unknown]
  - Nervousness [Unknown]
  - Insomnia [Unknown]
  - Discomfort [Unknown]
  - Photophobia [Unknown]
  - Hyperacusis [Unknown]
  - Menstrual disorder [Unknown]
  - Sleep disorder [Unknown]
  - Iron deficiency [Unknown]
  - Eczema [Unknown]
  - Injection site pain [Unknown]
  - Emotional disorder [Unknown]
  - Regurgitation [Unknown]
  - Musculoskeletal chest pain [Unknown]
  - Loss of personal independence in daily activities [Unknown]
  - Hypertension [Unknown]
  - Dyslipidaemia [Unknown]
  - Abdominal distension [Unknown]
  - Abdominal pain upper [Unknown]
  - Palpitations [Unknown]
  - Abdominal pain [Unknown]
  - Fatigue [Unknown]
  - Dizziness [Unknown]
  - Diarrhoea [Unknown]
  - Vomiting [Unknown]
  - Headache [Unknown]
  - Nausea [Unknown]
  - Decreased appetite [Unknown]

NARRATIVE: CASE EVENT DATE: 20220906
